FAERS Safety Report 5618893-9 (Version None)
Quarter: 2008Q1

REPORT INFORMATION
  Report Type: 
  Country: None (occurrence: None)
  Receive Date: 20080205
  Receipt Date: 20080130
  Transmission Date: 20080703
  Serious: Yes (Hospitalization)
  Sender: FDA-Public Use
  Company Number: S08-USA-00113-01

PATIENT
  Age: 27 Year
  Sex: Male

DRUGS (2)
  1. LEXAPRO [Suspect]
     Indication: DEPRESSION
     Dosage: 20 MG QD PO
     Route: 048
     Dates: start: 20071001, end: 20080106
  2. LEXAPRO [Suspect]
     Indication: DEPRESSION
     Dates: start: 20080107, end: 20080116

REACTIONS (1)
  - PRIAPISM [None]
